FAERS Safety Report 9010092 (Version 8)
Quarter: 2016Q3

REPORT INFORMATION
  Report Type: Spontaneous
  Country: US (occurrence: US)
  Receive Date: 20130110
  Receipt Date: 20160801
  Transmission Date: 20161109
  Serious: Yes (Hospitalization, Other)
  Sender: FDA-Public Use
  Company Number: US-MERCK-1301USA002413

PATIENT
  Sex: Female
  Weight: 79.82 kg

DRUGS (4)
  1. FOSAMAX PLUS D [Suspect]
     Active Substance: ALENDRONATE SODIUM\CHOLECALCIFEROL
     Indication: OSTEOPOROSIS
     Route: 048
  2. FOSAMAX [Suspect]
     Active Substance: ALENDRONATE SODIUM
     Indication: OSTEOPENIA
     Dosage: 70 MG, QW
     Route: 048
     Dates: end: 2010
  3. ALENDRONATE SODIUM. [Suspect]
     Active Substance: ALENDRONATE SODIUM
     Indication: OSTEOPOROSIS
     Dosage: 70 MG, UNK
     Route: 048
  4. FOSAMAX [Suspect]
     Active Substance: ALENDRONATE SODIUM
     Indication: OSTEOPOROSIS
     Dosage: 10 MG, QD
     Route: 048

REACTIONS (58)
  - Intramedullary rod insertion [Unknown]
  - Plastic surgery to the face [Unknown]
  - Large intestine polyp [Unknown]
  - Left ventricular hypertrophy [Unknown]
  - Back pain [Unknown]
  - Spinal compression fracture [Recovered/Resolved]
  - Intervertebral disc degeneration [Unknown]
  - Diverticulum [Unknown]
  - Spinal osteoarthritis [Unknown]
  - Squamous cell carcinoma [Unknown]
  - Ischaemic stroke [Unknown]
  - Pyrexia [Unknown]
  - Anaemia [Unknown]
  - Adverse event [Unknown]
  - Myofascitis [Unknown]
  - Lacunar infarction [Unknown]
  - Urinary tract infection [Unknown]
  - Hypertension [Unknown]
  - Accident [Unknown]
  - Goitre [Unknown]
  - Respiratory disorder [Unknown]
  - Fall [Unknown]
  - Thyroidectomy [Unknown]
  - Fluid overload [Unknown]
  - Rib fracture [Recovering/Resolving]
  - Hypothyroidism [Unknown]
  - Radiculopathy [Unknown]
  - Respiratory disorder [Unknown]
  - Musculoskeletal pain [Unknown]
  - Drug ineffective [Unknown]
  - Skin cancer [Unknown]
  - Keratinising squamous cell carcinoma of nasopharynx [Unknown]
  - Lung infiltration [Unknown]
  - Mucous membrane disorder [Unknown]
  - Arteriosclerosis [Unknown]
  - Hyperlipidaemia [Unknown]
  - Blood calcium increased [Unknown]
  - Cerebrovascular disorder [Unknown]
  - Oedema peripheral [Unknown]
  - Cerebrovascular accident [Unknown]
  - Hemiparesis [Unknown]
  - Respiratory distress [Unknown]
  - Sinusitis [Unknown]
  - Intervertebral disc protrusion [Unknown]
  - Muscular weakness [Unknown]
  - Osteoarthritis [Unknown]
  - Vitamin D deficiency [Unknown]
  - Anxiety [Not Recovered/Not Resolved]
  - Atrial fibrillation [Unknown]
  - Femur fracture [Unknown]
  - Pneumonia [Unknown]
  - Upper respiratory tract infection [Unknown]
  - Rotator cuff syndrome [Unknown]
  - White matter lesion [Not Recovered/Not Resolved]
  - Depression [Not Recovered/Not Resolved]
  - Goitre [Unknown]
  - Cervical radiculopathy [Unknown]
  - Pubis fracture [Recovering/Resolving]

NARRATIVE: CASE EVENT DATE: 1996
